FAERS Safety Report 20670630 (Version 2)
Quarter: 2022Q2

REPORT INFORMATION
  Report Type: Spontaneous
  Country: US (occurrence: US)
  Receive Date: 20220404
  Receipt Date: 20220516
  Transmission Date: 20220721
  Serious: No
  Sender: FDA-Public Use
  Company Number: US-PFIZER INC-202200376830

PATIENT
  Age: 10 Year
  Sex: Male
  Weight: 36.29 kg

DRUGS (2)
  1. GENOTROPIN [Suspect]
     Active Substance: SOMATROPIN
     Indication: Blood growth hormone
     Dosage: UNK, ALTERNATE DAY (DAILY 1.2 AND 1.4 ALTERNATE BETWEEN THE DATE)
     Dates: start: 20210903, end: 20220305
  2. GENOTROPIN [Suspect]
     Active Substance: SOMATROPIN
     Dosage: UNK, ALTERNATE DAY (DAILY 1.2 AND 1.4 ALTERNATE BETWEEN THE DATE)
     Dates: start: 20210903, end: 20220305

REACTIONS (3)
  - Drug dose omission by device [Unknown]
  - Device use error [Unknown]
  - Device breakage [Unknown]
